FAERS Safety Report 4765572-6 (Version None)
Quarter: 2005Q3

REPORT INFORMATION
  Report Type: 
  Country: None (occurrence: None)
  Receive Date: 20050906
  Receipt Date: 20050818
  Transmission Date: 20060218
  Serious: Yes (Death, Hospitalization)
  Sender: FDA-Public Use
  Company Number: EWC050845542

PATIENT
  Age: 68 Year
  Sex: Female
  Weight: 54 kg

DRUGS (13)
  1. FORTEO [Suspect]
     Indication: OSTEOPOROSIS
     Dates: start: 20050602
  2. PANTOPRAZOLE SODIUM [Concomitant]
  3. DOMPERIDONE [Concomitant]
  4. CANDESARTAN CILEXETIL [Concomitant]
  5. DOXAZOSIN [Concomitant]
  6. FOLIC ACID [Concomitant]
  7. FERROFUMARAT (FERROUS FUMARATE) [Concomitant]
  8. CALCICHEW D3 [Concomitant]
  9. MS CONTIN [Concomitant]
  10. ATROVENT [Concomitant]
  11. SPIRIVA [Concomitant]
  12. PRIMPERAN /SCH/(METOCLOPRAMIDE HYDROCHLORIDE) [Concomitant]
  13. ENALAPRIL MALEATE AND HYDROCHLOROTHIAZIDE [Concomitant]

REACTIONS (5)
  - GASTROENTERITIS [None]
  - MALAISE [None]
  - MULTI-ORGAN FAILURE [None]
  - SALMONELLA SEPSIS [None]
  - SHOCK [None]
